FAERS Safety Report 24774705 (Version 2)
Quarter: 2025Q1

REPORT INFORMATION
  Report Type: Report from Study
  Country: DE (occurrence: DE)
  Receive Date: 20241226
  Receipt Date: 20250108
  Transmission Date: 20250409
  Serious: Yes (Hospitalization)
  Sender: BOEHRINGER INGELHEIM
  Company Number: DE-BoehringerIngelheim-2024-BI-069428

PATIENT
  Age: 86 Year
  Sex: Male
  Weight: 65.1 kg

DRUGS (1)
  1. NINTEDANIB [Suspect]
     Active Substance: NINTEDANIB
     Indication: Interstitial lung disease
     Route: 048
     Dates: start: 20240726, end: 20241128

REACTIONS (2)
  - Pericardial effusion [Recovered/Resolved]
  - Pleural effusion [Recovered/Resolved]

NARRATIVE: CASE EVENT DATE: 20241128
